FAERS Safety Report 7966952-8 (Version None)
Quarter: 2011Q4

REPORT INFORMATION
  Report Type: 
  Country: None (occurrence: None)
  Receive Date: 20111207
  Receipt Date: 20111207
  Transmission Date: 20120403
  Serious: Yes (Other)
  Sender: FDA-Public Use
  Company Number: None

PATIENT
  Sex: Male

DRUGS (1)
  1. VICTRELIS [Suspect]
     Indication: HEPATITIS C
     Dosage: 800MG TID PO
     Route: 048
     Dates: start: 20111101, end: 20111202

REACTIONS (2)
  - MALAISE [None]
  - WEIGHT DECREASED [None]
